FAERS Safety Report 8825050 (Version 1)
Quarter: 2012Q4

REPORT INFORMATION
  Report Type: 
  Country: US (occurrence: US)
  Receive Date: 20121004
  Receipt Date: 20121004
  Transmission Date: 20130627
  Serious: Yes (Other)
  Sender: FDA-Public Use
  Company Number: PHEH2012US019176

PATIENT
  Age: 35 Year
  Sex: Female

DRUGS (2)
  1. GILENYA [Suspect]
     Indication: MULTIPLE SCLEROSIS
     Dosage: 1 DF, QD
     Route: 048
     Dates: start: 20110913
  2. FAMPRIDINE [Concomitant]
     Dosage: 10 mg, UNK

REACTIONS (2)
  - Iritis [Recovering/Resolving]
  - Visual acuity reduced [Recovering/Resolving]
